FAERS Safety Report 4319057-1 (Version None)
Quarter: 2004Q1

REPORT INFORMATION
  Report Type: 
  Country: None (occurrence: None)
  Receive Date: 20040318
  Receipt Date: 20040318
  Transmission Date: 20041129
  Serious: Yes (Life-Threatening, Disabling, Other)
  Sender: FDA-Public Use
  Company Number: None

PATIENT
  Age: 42 Year
  Sex: Female
  Weight: 45.8133 kg

DRUGS (1)
  1. CIPRO [Suspect]
     Indication: BACTERIAL INFECTION
     Dosage: 2 250 MG ORAL
     Route: 048
     Dates: start: 20030731, end: 20030821

REACTIONS (11)
  - ALOPECIA [None]
  - ANOREXIA [None]
  - DIZZINESS [None]
  - DYSPNOEA [None]
  - HYPOTHYROIDISM [None]
  - JOINT SWELLING [None]
  - PALPITATIONS [None]
  - SINUS TACHYCARDIA [None]
  - TREMOR [None]
  - VISUAL DISTURBANCE [None]
  - WEIGHT DECREASED [None]
